FAERS Safety Report 7902191-4 (Version None)
Quarter: 2011Q4

REPORT INFORMATION
  Report Type: 
  Country: None (occurrence: None)
  Receive Date: 20111108
  Receipt Date: 20111103
  Transmission Date: 20120403
  Serious: Yes (Other)
  Sender: FDA-Public Use
  Company Number: US-BAYER-2011-107149

PATIENT
  Age: 27 Year
  Sex: Female

DRUGS (1)
  1. MIRENA [Suspect]
     Indication: CONTRACEPTION
     Dosage: 20 MCG/24HR, CONT
     Route: 015
     Dates: start: 20101228, end: 20110415

REACTIONS (4)
  - GENITAL HAEMORRHAGE [None]
  - DEVICE COMPONENT ISSUE [None]
  - ABDOMINAL PAIN [None]
  - DEVICE EXPULSION [None]
